FAERS Safety Report 7328296-7 (Version None)
Quarter: 2011Q1

REPORT INFORMATION
  Report Type: 
  Country: None (occurrence: None)
  Receive Date: 20110224
  Receipt Date: 20110224
  Transmission Date: 20110831
  Serious: Yes (Other)
  Sender: FDA-Public Use
  Company Number: None

PATIENT
  Age: 69 Year
  Sex: Male
  Weight: 127.0072 kg

DRUGS (10)
  1. OMEPRAZOLE [Concomitant]
  2. WARFARIN [Concomitant]
  3. MIRAPEX [Concomitant]
  4. SIMVASTATIN [Concomitant]
  5. LANTISEPTIC SKIN PROTECTANT) [Suspect]
     Dosage: TOPICAL; ONE TIME
     Dates: start: 20110203
  6. EQUATE ULTRA MEN'S HEALTH [Concomitant]
  7. LOSARTAN POTASSIUM [Concomitant]
  8. MEVOTHYROXINE [Concomitant]
  9. VERAPAMIL [Concomitant]
  10. ASPIRIN [Concomitant]

REACTIONS (6)
  - DRUG HYPERSENSITIVITY [None]
  - OEDEMA PERIPHERAL [None]
  - PRURITUS [None]
  - INFECTION [None]
  - BLISTER [None]
  - TENDERNESS [None]
